FAERS Safety Report 7740299-7 (Version None)
Quarter: 2011Q3

REPORT INFORMATION
  Report Type: 
  Country: None (occurrence: None)
  Receive Date: 20110909
  Receipt Date: 20110825
  Transmission Date: 20111222
  Serious: Yes (Other)
  Sender: FDA-Public Use
  Company Number: PL-ROCHE-801121

PATIENT
  Weight: 75 kg

DRUGS (3)
  1. METHOTREXATE [Concomitant]
     Indication: RHEUMATOID ARTHRITIS
     Route: 048
     Dates: start: 20070922
  2. TOCILIZUMAB [Suspect]
     Indication: RHEUMATOID ARTHRITIS
     Route: 042
     Dates: start: 20101216
  3. MEDROL [Concomitant]
     Indication: RHEUMATOID ARTHRITIS
     Dates: start: 20070922

REACTIONS (4)
  - WHITE BLOOD CELLS URINE POSITIVE [None]
  - URINARY TRACT INFECTION [None]
  - POLLAKIURIA [None]
  - DYSURIA [None]
